FAERS Safety Report 9442593 (Version 1)
Quarter: 2013Q3

REPORT INFORMATION
  Report Type: Spontaneous
  Country: US (occurrence: US)
  Receive Date: 20130806
  Receipt Date: 20130806
  Transmission Date: 20140515
  Serious: Yes (Hospitalization, Other)
  Sender: FDA-Public Use
  Company Number: US-ASTELLAS-2013US008124

PATIENT
  Age: 91 Year
  Sex: Male

DRUGS (1)
  1. TARCEVA [Suspect]
     Indication: MALIGNANT MELANOMA
     Dosage: 150 MG, UID/QD
     Route: 048
     Dates: start: 20130706, end: 20130720

REACTIONS (5)
  - Off label use [Unknown]
  - Fall [Unknown]
  - Diarrhoea [Unknown]
  - Decreased appetite [Unknown]
  - Asthenia [Unknown]
